FAERS Safety Report 8179227-1 (Version None)
Quarter: 2012Q1

REPORT INFORMATION
  Report Type: 
  Country: None (occurrence: None)
  Receive Date: 20120302
  Receipt Date: 20120221
  Transmission Date: 20120608
  Serious: Yes (Hospitalization)
  Sender: FDA-Public Use
  Company Number: US-BAYER-2011-075114

PATIENT
  Age: 42 Year
  Sex: Female
  Weight: 58.957 kg

DRUGS (8)
  1. VICOPROFEN [Concomitant]
     Dosage: 7.5/200 MG
     Route: 048
     Dates: start: 20040101, end: 20090101
  2. KETOROLAC TROMETHAMINE [Concomitant]
     Dosage: 10 MG
     Route: 048
  3. ASPIRIN [Concomitant]
     Dosage: 325 MG, UNK
     Route: 048
  4. YAZ [Suspect]
     Dosage: UNK
     Dates: start: 20090729
  5. YAZ [Suspect]
     Dosage: UNK
     Dates: start: 20090814
  6. YAZ [Suspect]
     Indication: VAGINAL HAEMORRHAGE
     Dosage: UNK
     Dates: start: 20071002, end: 20081203
  7. MOTRIN [Concomitant]
     Dosage: 600 MG, UNK
     Route: 048
  8. FLAGYL [Concomitant]
     Dosage: 500 MG
     Route: 048

REACTIONS (3)
  - DEEP VEIN THROMBOSIS [None]
  - INJURY [None]
  - PAIN [None]
